FAERS Safety Report 16958654 (Version 1)
Quarter: 2019Q4

REPORT INFORMATION
  Report Type: Spontaneous
  Country: US (occurrence: US)
  Receive Date: 20191024
  Receipt Date: 20191024
  Transmission Date: 20200122
  Serious: No
  Sender: FDA-Public Use
  Company Number: US-INCYTE CORPORATION-2019IN010334

PATIENT

DRUGS (1)
  1. JAKAFI [Suspect]
     Active Substance: RUXOLITINIB
     Indication: NON-HODGKIN^S LYMPHOMA
     Dosage: 5 MG, 1 TABLET QAM AND 2 TABLETS QPM
     Route: 048

REACTIONS (2)
  - Product use issue [Unknown]
  - Off label use [Unknown]
